FAERS Safety Report 20208475 (Version 4)
Quarter: 2022Q4

REPORT INFORMATION
  Report Type: Report from Study
  Country: FR (occurrence: None)
  Receive Date: 20211220
  Receipt Date: 20221130
  Transmission Date: 20230112
  Serious: Yes (Hospitalization)
  Sender: FDA-Public Use
  Company Number: FR-ROCHE-2981537

PATIENT
  Age: 55 Year
  Sex: Female
  Weight: 47 kg

DRUGS (5)
  1. TIRAGOLUMAB [Suspect]
     Active Substance: TIRAGOLUMAB
     Indication: Ovarian cancer metastatic
     Dosage: ON 17/NOV/2021 AT 2:20 PM, MOST RECENT DOSE OF STUDY DRUG PRIOR TO AE?ON 17/NOV/2021 AT 3:10 PM, MOS
     Route: 042
     Dates: start: 20171215
  2. ATEZOLIZUMAB [Suspect]
     Active Substance: ATEZOLIZUMAB
     Indication: Ovarian cancer metastatic
     Dosage: ON 11/NOV/2021 3:15 PM, MOST RECENT DOSE OF STUDY DRUG PRIOR TO AE
     Route: 041
     Dates: start: 20171215
  3. LEVOTHYROXINE [Concomitant]
     Active Substance: LEVOTHYROXINE
     Indication: Hypothyroidism
     Route: 048
     Dates: start: 20191025
  4. RAMIPRIL [Concomitant]
     Active Substance: RAMIPRIL
     Indication: Prophylaxis
     Dosage: DOSE: 1 UNKNOWN
     Route: 048
     Dates: start: 20200814
  5. DESLORATADINE [Concomitant]
     Active Substance: DESLORATADINE
     Indication: Dry skin
     Dosage: DOSE: 1 UNKNOWN
     Route: 048
     Dates: start: 20201216, end: 20220302

REACTIONS (1)
  - Immune-mediated adrenal insufficiency [Recovered/Resolved]

NARRATIVE: CASE EVENT DATE: 20211208
